FAERS Safety Report 6727252-7 (Version None)
Quarter: 2010Q2

REPORT INFORMATION
  Report Type: 
  Country: None (occurrence: None)
  Receive Date: 20100512
  Receipt Date: 20100120
  Transmission Date: 20101027
  Serious: No
  Sender: FDA-Public Use
  Company Number: 1000011448

PATIENT
  Sex: Female

DRUGS (1)
  1. SAVELLA [Suspect]
     Dosage: STOPPED

REACTIONS (2)
  - MALAISE [None]
  - SWOLLEN TONGUE [None]
